FAERS Safety Report 4833446-8 (Version None)
Quarter: 2005Q4

REPORT INFORMATION
  Report Type: 
  Country: None (occurrence: None)
  Receive Date: 20051117
  Receipt Date: 20051107
  Transmission Date: 20060501
  Serious: Yes (Other)
  Sender: FDA-Public Use
  Company Number: EWC051147071

PATIENT
  Age: 61 Year
  Sex: Female

DRUGS (5)
  1. TERIPARATIDE [Suspect]
     Indication: OSTEOPOROSIS
     Dosage: 20 MG DAY
     Dates: start: 20040501, end: 20040629
  2. OXYCONTIN [Concomitant]
  3. PREDNISOLONUM [Concomitant]
  4. LANSOPRAZOLE [Concomitant]
  5. CALCIMAGON (CALCIUM CARBONATE) [Concomitant]

REACTIONS (7)
  - BACK PAIN [None]
  - HAEMATOMA [None]
  - NON-SMALL CELL LUNG CANCER METASTATIC [None]
  - RIB FRACTURE [None]
  - SCAPULA FRACTURE [None]
  - SHOULDER PAIN [None]
  - SPINAL FRACTURE [None]
